FAERS Safety Report 4358048-1 (Version None)
Quarter: 2004Q2

REPORT INFORMATION
  Report Type: 
  Country: None (occurrence: None)
  Receive Date: 20040514
  Receipt Date: 20040510
  Transmission Date: 20050107
  Serious: Yes (Other)
  Sender: FDA-Public Use
  Company Number: 200414886GDDC

PATIENT
  Age: 35 Year
  Sex: Female

DRUGS (3)
  1. CLOMID [Suspect]
     Indication: INFERTILITY
     Dosage: DOSE: 50/100/150 (INCREASED DOSES)
     Route: 048
     Dates: start: 20030901
  2. WARFARIN SODIUM [Suspect]
     Indication: PROTEIN S DECREASED
     Dosage: DOSE: 5 MG/4 MG
     Route: 048
     Dates: start: 19920101
  3. FOLIC ACID [Concomitant]
     Route: 048
     Dates: start: 20030301

REACTIONS (2)
  - DRUG INTERACTION [None]
  - INTERNATIONAL NORMALISED RATIO INCREASED [None]
